FAERS Safety Report 5945199-0 (Version None)
Quarter: 2008Q4

REPORT INFORMATION
  Report Type: 
  Country: None (occurrence: None)
  Receive Date: 20081107
  Receipt Date: 20081031
  Transmission Date: 20090506
  Serious: Yes (Other)
  Sender: FDA-Public Use
  Company Number: B0545200A

PATIENT
  Age: 33 Year
  Sex: Female

DRUGS (3)
  1. TRIZIVIR [Suspect]
     Indication: HIV INFECTION
     Route: 048
     Dates: start: 20051203, end: 20060401
  2. ZIAGEN [Suspect]
     Indication: HIV INFECTION
     Route: 065
     Dates: start: 20010219, end: 20051203
  3. COMBIVIR [Suspect]
     Indication: HIV INFECTION
     Route: 065
     Dates: start: 20010219, end: 20051203

REACTIONS (4)
  - DRUG RESISTANCE [None]
  - DYSPEPSIA [None]
  - HAEMATOTOXICITY [None]
  - IMMUNE SYSTEM DISORDER [None]
